FAERS Safety Report 19674370 (Version 1)
Quarter: 2021Q3

REPORT INFORMATION
  Report Type: Spontaneous
  Country: AT (occurrence: AT)
  Receive Date: 20210809
  Receipt Date: 20210809
  Transmission Date: 20211014
  Serious: Yes (Other)
  Sender: FDA-Public Use
  Company Number: AT-SA-2021SA255636

PATIENT
  Age: 32 Year
  Sex: Female

DRUGS (5)
  1. TOUJEO [Suspect]
     Active Substance: INSULIN GLARGINE
     Dosage: 58 IU, UNK
     Route: 065
     Dates: start: 20210318
  2. TOUJEO [Suspect]
     Active Substance: INSULIN GLARGINE
     Dosage: 52 IU, UNK
     Route: 065
  3. NPH INSULIN [Concomitant]
     Active Substance: INSULIN BEEF
     Dosage: UNK
     Route: 065
  4. TOUJEO [Suspect]
     Active Substance: INSULIN GLARGINE
     Dosage: 30 IU UNK
     Dates: start: 20210401
  5. METFORMIN [Concomitant]
     Active Substance: METFORMIN HYDROCHLORIDE
     Indication: DIABETES MELLITUS
     Dosage: UNK
     Route: 065

REACTIONS (3)
  - Monogenic diabetes [Unknown]
  - Maternal exposure during pregnancy [Unknown]
  - Blood glucose increased [Unknown]
